FAERS Safety Report 25031036 (Version 3)
Quarter: 2025Q1

REPORT INFORMATION
  Report Type: Spontaneous
  Country: US (occurrence: US)
  Receive Date: 20250303
  Receipt Date: 20250310
  Transmission Date: 20250409
  Serious: Yes (Other)
  Sender: PFIZER
  Company Number: US-MLMSERVICE-20250219-PI420836-00175-1

PATIENT
  Age: 66 Year
  Sex: Male

DRUGS (1)
  1. HEPARIN SODIUM [Suspect]
     Active Substance: HEPARIN SODIUM
     Indication: Anticoagulant therapy
     Route: 040

REACTIONS (6)
  - Subcapsular renal haematoma [Recovered/Resolved]
  - Retroperitoneal haematoma [Recovered/Resolved]
  - Renal cyst haemorrhage [Recovered/Resolved]
  - Renal cyst ruptured [Recovered/Resolved]
  - Blood loss anaemia [Recovered/Resolved]
  - Haemodynamic instability [Recovered/Resolved]
